FAERS Safety Report 11208979 (Version 2)
Quarter: 2015Q3

REPORT INFORMATION
  Report Type: Spontaneous
  Country: FR (occurrence: FR)
  Receive Date: 20150622
  Receipt Date: 20150706
  Transmission Date: 20151125
  Serious: Yes (Other)
  Sender: FDA-Public Use
  Company Number: FR-TEVA-571912ISR

PATIENT
  Sex: Male

DRUGS (5)
  1. INEXIUM [Interacting]
     Active Substance: ESOMEPRAZOLE
     Indication: GASTROOESOPHAGEAL REFLUX DISEASE
     Route: 065
  2. AMIODARONE [Suspect]
     Active Substance: AMIODARONE
     Indication: SUPRAVENTRICULAR TACHYCARDIA
     Dosage: 500 MG/M2 FOR FOUR DAYS
     Route: 048
  3. AMIODARONE [Interacting]
     Active Substance: AMIODARONE
     Dosage: 250 MG/M2 DAILY;
     Route: 048
  4. ADENOSINE DIPHOSPHATE [Concomitant]
     Indication: SUPRAVENTRICULAR TACHYCARDIA
     Route: 065
  5. GAVISCON [Interacting]
     Active Substance: ALUMINUM HYDROXIDE\MAGNESIUM CARBONATE
     Indication: GASTROOESOPHAGEAL REFLUX DISEASE
     Dosage: 1ML AFTER FEED
     Route: 065

REACTIONS (2)
  - Supraventricular tachycardia [Recovered/Resolved]
  - Drug interaction [Recovered/Resolved]
